FAERS Safety Report 10861481 (Version 2)
Quarter: 2015Q2

REPORT INFORMATION
  Report Type: Spontaneous
  Country: CZ (occurrence: CZ)
  Receive Date: 20150223
  Receipt Date: 20150421
  Transmission Date: 20150821
  Serious: Yes (Life-Threatening, Hospitalization, Other)
  Sender: FDA-Public Use
  Company Number: CZ-ACCORD-028685

PATIENT
  Age: 68 Year
  Sex: Male

DRUGS (2)
  1. CISPLATIN HOSPIRA [Concomitant]
     Dosage: 0.5 MG/ML
     Dates: start: 20141208
  2. FLUOROURACIL ACCORD [Suspect]
     Active Substance: FLUOROURACIL
     Indication: PRODUCT USED FOR UNKNOWN INDICATION
     Dosage: 50 MG/ML
     Dates: start: 20141208

REACTIONS (5)
  - Mucosal toxicity [Recovered/Resolved]
  - Hypotension [Unknown]
  - Subileus [Unknown]
  - Dehydration [Recovered/Resolved]
  - Diarrhoea [Recovered/Resolved]
